FAERS Safety Report 14162797 (Version 1)
Quarter: 2017Q4

REPORT INFORMATION
  Report Type: Spontaneous
  Country: BR (occurrence: BR)
  Receive Date: 20171106
  Receipt Date: 20171106
  Transmission Date: 20180321
  Serious: Yes (Other)
  Sender: FDA-Public Use
  Company Number: BR-PFIZER INC-2017459906

PATIENT
  Age: 13 Year
  Sex: Female
  Weight: 42 kg

DRUGS (1)
  1. GENOTROPIN [Suspect]
     Active Substance: SOMATROPIN
     Indication: GROWTH RETARDATION
     Dosage: 2.1 MG, DAILY
     Dates: start: 20171016

REACTIONS (2)
  - Dizziness [Not Recovered/Not Resolved]
  - Injection site coldness [Recovered/Resolved]

NARRATIVE: CASE EVENT DATE: 20171017
